FAERS Safety Report 8321486-6 (Version None)
Quarter: 2012Q2

REPORT INFORMATION
  Report Type: 
  Country: None (occurrence: None)
  Receive Date: 20120430
  Receipt Date: 20120430
  Transmission Date: 20120825
  Serious: No
  Sender: FDA-Public Use
  Company Number: None

PATIENT
  Age: 29 Year
  Sex: Male
  Weight: 83.914 kg

DRUGS (1)
  1. AVELOX [Suspect]
     Indication: SINUSITIS
     Route: 048
     Dates: start: 20120307, end: 20120308

REACTIONS (20)
  - JOINT CREPITATION [None]
  - TENDON PAIN [None]
  - VISUAL ACUITY REDUCED [None]
  - TREMOR [None]
  - DIZZINESS [None]
  - PERIPHERAL COLDNESS [None]
  - PHOTOPHOBIA [None]
  - PRESYNCOPE [None]
  - PAIN [None]
  - MUSCLE TIGHTNESS [None]
  - ANXIETY [None]
  - FEELING ABNORMAL [None]
  - FORMICATION [None]
  - INSOMNIA [None]
  - MUSCLE SPASMS [None]
  - PALPITATIONS [None]
  - FATIGUE [None]
  - NIGHT SWEATS [None]
  - VITREOUS FLOATERS [None]
  - NAUSEA [None]
